FAERS Safety Report 5226927-9 (Version None)
Quarter: 2007Q1

REPORT INFORMATION
  Report Type: 
  Country: None (occurrence: None)
  Receive Date: 20070201
  Receipt Date: 20070201
  Transmission Date: 20070707
  Serious: No
  Sender: FDA-Public Use
  Company Number: None

PATIENT
  Sex: Female

DRUGS (2)
  1. BONIVA [Suspect]
     Indication: OSTEOPOROSIS
     Dosage: TAKE ONE TABLET ORALLY ONCE EVERY THIRTY DAYS
     Dates: start: 20060514
  2. BONIVA [Suspect]
     Indication: OSTEOPOROSIS
     Dosage: TAKE ONE TABLET ORALLY ONCE EVERY THIRTY DAYS
     Dates: start: 20060613

REACTIONS (10)
  - ARTHRALGIA [None]
  - BONE PAIN [None]
  - FATIGUE [None]
  - HYPERTENSION [None]
  - NAUSEA [None]
  - NEOPLASM MALIGNANT [None]
  - OEDEMA [None]
  - RED BLOOD CELL SEDIMENTATION RATE INCREASED [None]
  - RHEUMATOID FACTOR INCREASED [None]
  - SKIN DISCOLOURATION [None]
